FAERS Safety Report 14209583 (Version 2)
Quarter: 2018Q1

REPORT INFORMATION
  Report Type: Spontaneous
  Country: US (occurrence: US)
  Receive Date: 20171121
  Receipt Date: 20180117
  Transmission Date: 20180508
  Serious: Yes (Hospitalization)
  Sender: FDA-Public Use
  Company Number: US-JNJFOC-20171007532

PATIENT
  Age: 74 Year
  Sex: Male

DRUGS (1)
  1. XARELTO [Suspect]
     Active Substance: RIVAROXABAN
     Indication: PULMONARY EMBOLISM
     Dosage: 15 MG/20 MG
     Route: 048
     Dates: start: 201408, end: 20140917

REACTIONS (1)
  - Chronic gastrointestinal bleeding [Recovering/Resolving]

NARRATIVE: CASE EVENT DATE: 201408
